FAERS Safety Report 9783853 (Version 1)
Quarter: 2013Q4

REPORT INFORMATION
  Report Type: Spontaneous
  Country: CH (occurrence: CH)
  Receive Date: 20131226
  Receipt Date: 20131226
  Transmission Date: 20140711
  Serious: Yes (Other)
  Sender: FDA-Public Use
  Company Number: CH-B.I. PHARMACEUTICALS,INC./RIDGEFIELD-2013-BI-42896SI

PATIENT
  Age: 41 Year
  Sex: Female

DRUGS (3)
  1. VIRAMUNE [Suspect]
     Dates: start: 20130414
  2. ATRIPLA [Suspect]
     Route: 048
     Dates: end: 20130414
  3. TRUVADA [Suspect]
     Dates: start: 20130414

REACTIONS (1)
  - Abortion [Recovered/Resolved]
